FAERS Safety Report 26161844 (Version 1)
Quarter: 2025Q4

REPORT INFORMATION
  Report Type: Spontaneous
  Country: US (occurrence: None)
  Receive Date: 20251216
  Receipt Date: 20251216
  Transmission Date: 20260118
  Serious: No
  Sender: ENDO
  Company Number: US-ENDO USA, INC.-2025-000796

PATIENT
  Sex: Male

DRUGS (1)
  1. XIAFLEX [Suspect]
     Active Substance: COLLAGENASE CLOSTRIDIUM HISTOLYTICUM
     Indication: Peyronie^s disease
     Dosage: UNK UNKNOWN, UNKNOWN (INITIAL INJECTION IN THE MORNING)

REACTIONS (9)
  - Swelling [Recovering/Resolving]
  - Genital discolouration [Recovering/Resolving]
  - Pain [Recovering/Resolving]
  - Dysuria [Recovering/Resolving]
  - Penile size reduced [Recovering/Resolving]
  - Discomfort [Recovering/Resolving]
  - Contusion [Recovering/Resolving]
  - Scrotal swelling [Recovering/Resolving]
  - Penile swelling [Recovering/Resolving]

NARRATIVE: CASE EVENT DATE: 20250226
